FAERS Safety Report 8767275 (Version 4)
Quarter: 2012Q4

REPORT INFORMATION
  Report Type: 
  Country: JP (occurrence: JP)
  Receive Date: 20120904
  Receipt Date: 20121023
  Transmission Date: 20130627
  Serious: No
  Sender: FDA-Public Use
  Company Number: JP-GLAXOSMITHKLINE-B0826808A

PATIENT
  Age: 22 Year
  Sex: Male

DRUGS (10)
  1. LAMICTAL [Suspect]
     Indication: EPILEPSY
     Dosage: 25MG Per day
     Route: 048
     Dates: start: 20100910
  2. LAMICTAL [Suspect]
     Indication: EPILEPSY
     Dosage: 50MG Per day
     Route: 048
  3. LAMICTAL [Suspect]
     Indication: EPILEPSY
     Dosage: 100MG Per day
     Route: 048
  4. LAMICTAL [Suspect]
     Indication: EPILEPSY
     Dosage: 125MG Per day
     Route: 048
  5. LAMICTAL [Suspect]
     Indication: EPILEPSY
     Dosage: 150MG Per day
     Route: 048
  6. LAMICTAL [Suspect]
     Indication: EPILEPSY
     Dosage: 200MG Per day
     Route: 048
     Dates: end: 20120827
  7. LAMICTAL [Suspect]
     Indication: EPILEPSY
     Dosage: 100MG Per day
     Route: 048
     Dates: start: 20120828, end: 20120911
  8. TEGRETOL [Concomitant]
     Indication: EPILEPSY
     Dosage: 200MG Twice per day
     Route: 048
     Dates: start: 20030922, end: 20101220
  9. DEPAKENE R [Concomitant]
     Indication: EPILEPSY
     Dosage: 400MG Twice per day
     Route: 048
     Dates: start: 20090422
  10. MYSTAN [Concomitant]
     Indication: EPILEPSY
     Dosage: 5MG Per day
     Route: 048
     Dates: start: 20100113, end: 20110301

REACTIONS (1)
  - Hyperamylasaemia [Recovered/Resolved]
